FAERS Safety Report 5583847-8 (Version None)
Quarter: 2008Q1

REPORT INFORMATION
  Report Type: 
  Country: None (occurrence: None)
  Receive Date: 20080102
  Receipt Date: 20080102
  Transmission Date: 20080703
  Serious: Yes (Other)
  Sender: FDA-Public Use
  Company Number: None

PATIENT
  Sex: Female
  Weight: 74.8435 kg

DRUGS (2)
  1. ACTONEL [Suspect]
     Indication: OSTEOPENIA
     Dosage: 1 TABLET ONCE WEEKLY PO
     Route: 048
     Dates: start: 20071001, end: 20071101
  2. FORTICAL [Suspect]
     Indication: OSTEOPENIA
     Dosage: 1 SPRAY DAILY NASAL
     Route: 045
     Dates: start: 20071107, end: 20071121

REACTIONS (18)
  - ABDOMINAL PAIN UPPER [None]
  - ABNORMAL FAECES [None]
  - ARTHRALGIA [None]
  - BACK PAIN [None]
  - BONE PAIN [None]
  - CONSTIPATION [None]
  - DIZZINESS [None]
  - DYSPEPSIA [None]
  - FEELING ABNORMAL [None]
  - FLUID RETENTION [None]
  - HEADACHE [None]
  - HEART RATE IRREGULAR [None]
  - JOINT RANGE OF MOTION DECREASED [None]
  - JOINT SWELLING [None]
  - OEDEMA PERIPHERAL [None]
  - PAIN IN EXTREMITY [None]
  - RECTAL HAEMORRHAGE [None]
  - SLEEP DISORDER DUE TO GENERAL MEDICAL CONDITION, INSOMNIA TYPE [None]
